FAERS Safety Report 24260336 (Version 1)
Quarter: 2024Q3

REPORT INFORMATION
  Report Type: Spontaneous
  Country: US (occurrence: None)
  Receive Date: 20240827
  Receipt Date: 20240827
  Transmission Date: 20241017
  Serious: Yes (Other)
  Sender: Public
  Company Number: None

PATIENT
  Sex: Female
  Weight: 101.6 kg

DRUGS (1)
  1. AIMOVIG [Suspect]
     Active Substance: ERENUMAB-AOOE
     Indication: Migraine

REACTIONS (6)
  - Cellulitis [None]
  - Malaise [None]
  - Injection site erythema [None]
  - Injection site warmth [None]
  - Injection site induration [None]
  - Injection site pain [None]
